FAERS Safety Report 4486183-6 (Version None)
Quarter: 2004Q4

REPORT INFORMATION
  Report Type: 
  Country: None (occurrence: None)
  Receive Date: 20041021
  Receipt Date: 20041013
  Transmission Date: 20050328
  Serious: Yes (Hospitalization)
  Sender: FDA-Public Use
  Company Number: RB-979-2004

PATIENT
  Age: 58 Year
  Sex: Male

DRUGS (1)
  1. BUPRENORPHINE HCL [Suspect]
     Indication: ABDOMINAL PAIN UPPER
     Dosage: 0.6 MG
     Route: 048
     Dates: start: 19990101

REACTIONS (1)
  - HEPATIC NECROSIS [None]
